FAERS Safety Report 5913329-2 (Version None)
Quarter: 2008Q4

REPORT INFORMATION
  Report Type: 
  Country: None (occurrence: None)
  Receive Date: 20081009
  Receipt Date: 20080925
  Transmission Date: 20090506
  Serious: Yes (Death, Life-Threatening, Other)
  Sender: FDA-Public Use
  Company Number: PHHY2008CA22202

PATIENT
  Sex: Female

DRUGS (1)
  1. DIOVAN [Suspect]
     Dosage: 80 MG

REACTIONS (5)
  - ARTERIAL INSUFFICIENCY [None]
  - CELLULITIS [None]
  - DEATH [None]
  - SEPSIS [None]
  - SEPTIC SHOCK [None]
